FAERS Safety Report 5135310-6 (Version None)
Quarter: 2006Q4

REPORT INFORMATION
  Report Type: 
  Country: None (occurrence: None)
  Receive Date: 20061026
  Receipt Date: 20050705
  Transmission Date: 20070319
  Serious: Yes (Death, Other)
  Sender: FDA-Public Use
  Company Number: FR-NOVOPROD-245295

PATIENT
  Age: 73 Year
  Sex: Male
  Weight: 62 kg

DRUGS (10)
  1. AUGMENTAN ORAL [Concomitant]
     Dosage: 3 G, QD
     Route: 048
     Dates: start: 20050704
  2. VITAMIN B1 AND B6 [Concomitant]
     Dosage: 1 TAB, QD
     Route: 048
     Dates: start: 20050704
  3. NOVOSEVEN [Suspect]
     Indication: UPPER GASTROINTESTINAL HAEMORRHAGE
     Dosage: 600 UG/KG, UNK
     Route: 042
     Dates: start: 20050622, end: 20050622
  4. SUCRALFATE [Concomitant]
     Dosage: 3 UNK, QD
     Route: 048
     Dates: start: 20050704
  5. OFLOXACIN [Concomitant]
     Dosage: 400 MG, QD
     Route: 048
     Dates: start: 20050704
  6. ACETYLCYSTEINE [Concomitant]
     Dosage: 3 UNK, QD
     Route: 048
     Dates: start: 20050704
  7. SPIRONOLACTONE [Concomitant]
     Dosage: 75 MG, QD
     Route: 048
     Dates: start: 20050704
  8. FUROSEMIDE [Concomitant]
     Dosage: 40 MG, QD
     Route: 048
     Dates: start: 20050704
  9. OCTREOTIDE ACETATE [Concomitant]
     Dosage: 50 UG, UNK
     Dates: start: 20050621, end: 20050621
  10. OCTREOTIDE ACETATE [Concomitant]
     Dosage: 1.2 MG, QD
     Dates: start: 20050621

REACTIONS (3)
  - HAEMORRHAGE [None]
  - HEPATIC NEOPLASM MALIGNANT [None]
  - PORTAL VEIN THROMBOSIS [None]
